FAERS Safety Report 7126717-6 (Version None)
Quarter: 2010Q4

REPORT INFORMATION
  Report Type: 
  Country: None (occurrence: None)
  Receive Date: 20101129
  Receipt Date: 20101116
  Transmission Date: 20110411
  Serious: Yes (Hospitalization)
  Sender: FDA-Public Use
  Company Number: JP-ASTRAZENECA-2010SE54643

PATIENT
  Age: 38 Year
  Sex: Female

DRUGS (6)
  1. SEROQUEL [Suspect]
     Route: 048
  2. SEROQUEL [Suspect]
     Dosage: 100 TABLETS
     Route: 048
     Dates: start: 20101109
  3. LEXOTAN [Concomitant]
     Route: 048
  4. TETRAMIDE [Concomitant]
  5. AKINETON [Concomitant]
     Route: 048
  6. DEPROMEL [Concomitant]

REACTIONS (2)
  - COMA [None]
  - OVERDOSE [None]
